FAERS Safety Report 22952623 (Version 4)
Quarter: 2025Q1

REPORT INFORMATION
  Report Type: Spontaneous
  Country: CA (occurrence: CA)
  Receive Date: 20230918
  Receipt Date: 20250213
  Transmission Date: 20250408
  Serious: Yes (Death, Other)
  Sender: HIKMA
  Company Number: CA-HIKMA PHARMACEUTICALS-CA-H14001-23-65048

PATIENT
  Age: 43 Year
  Sex: Male

DRUGS (9)
  1. ACETAMINOPHEN [Suspect]
     Active Substance: ACETAMINOPHEN
     Indication: Product used for unknown indication
     Route: 065
  2. CARBAMAZEPINE [Suspect]
     Active Substance: CARBAMAZEPINE
     Indication: Product used for unknown indication
     Route: 065
  3. DIPHENHYDRAMINE HYDROCHLORIDE [Suspect]
     Active Substance: DIPHENHYDRAMINE HYDROCHLORIDE
     Indication: Product used for unknown indication
     Route: 065
  4. ETIZOLAM [Suspect]
     Active Substance: ETIZOLAM
     Indication: Product used for unknown indication
     Route: 065
  5. FENTANYL [Suspect]
     Active Substance: FENTANYL
     Indication: Product used for unknown indication
     Route: 065
  6. FLUDIAZEPAM [Suspect]
     Active Substance: FLUDIAZEPAM
     Indication: Product used for unknown indication
     Route: 065
  7. METHADONE [Suspect]
     Active Substance: METHADONE HYDROCHLORIDE
     Indication: Product used for unknown indication
     Route: 065
  8. METHADOSE SUGAR-FREE [Suspect]
     Active Substance: METHADONE HYDROCHLORIDE
     Indication: Product used for unknown indication
     Route: 065
  9. NALOXONE [Suspect]
     Active Substance: NALOXONE
     Indication: Product used for unknown indication
     Route: 065

REACTIONS (2)
  - Overdose [Fatal]
  - Toxicity to various agents [Fatal]
